FAERS Safety Report 21260636 (Version 1)
Quarter: 2022Q3

REPORT INFORMATION
  Report Type: Report from Study
  Country: US (occurrence: US)
  Receive Date: 20220826
  Receipt Date: 20220826
  Transmission Date: 20221026
  Serious: Yes (Hospitalization)
  Sender: FDA-Public Use
  Company Number: US-ALLERGAN-2227812US

PATIENT
  Sex: Male
  Weight: 89.357 kg

DRUGS (9)
  1. CARIPRAZINE HYDROCHLORIDE [Suspect]
     Active Substance: CARIPRAZINE HYDROCHLORIDE
     Indication: Depression
     Route: 048
  2. LEXAPRO [Concomitant]
     Active Substance: ESCITALOPRAM OXALATE
  3. DIAZEPAM [Concomitant]
     Active Substance: DIAZEPAM
  4. EZETIMIBE [Concomitant]
     Active Substance: EZETIMIBE
  5. ENTRESTO [Concomitant]
     Active Substance: SACUBITRIL\VALSARTAN
  6. CYANOCOBALAMIN [Concomitant]
     Active Substance: CYANOCOBALAMIN
  7. LAMICTAL [Concomitant]
     Active Substance: LAMOTRIGINE
  8. ASPIRIN [Concomitant]
     Active Substance: ASPIRIN
  9. CARVEDILOL [Concomitant]
     Active Substance: CARVEDILOL

REACTIONS (4)
  - Dyspnoea [Unknown]
  - Cardiomyopathy [Unknown]
  - Hypertension [Unknown]
  - Depressed mood [Unknown]

NARRATIVE: CASE EVENT DATE: 20210803
